FAERS Safety Report 5570091-3 (Version None)
Quarter: 2007Q4

REPORT INFORMATION
  Report Type: 
  Country: None (occurrence: None)
  Receive Date: 20071218
  Receipt Date: 20071203
  Transmission Date: 20080405
  Serious: Yes (Disabling)
  Sender: FDA-Public Use
  Company Number: S07-FRA-05784-01

PATIENT
  Age: 63 Year
  Sex: Male
  Weight: 92 kg

DRUGS (4)
  1. ESCITALOPRAM [Suspect]
     Indication: DEPRESSION
     Dosage: 20 MG QD PO
     Route: 048
     Dates: start: 20070828, end: 20071002
  2. FENOFIBRATE [Concomitant]
  3. FOSINOPRIL SODIUM AND HYDROCHLOROTHIAZIDE [Concomitant]
  4. XANAX [Concomitant]

REACTIONS (7)
  - ACCOMMODATION DISORDER [None]
  - BACK PAIN [None]
  - DYSURIA [None]
  - FATIGUE [None]
  - MUSCLE CONTRACTURE [None]
  - PYREXIA [None]
  - TORTICOLLIS [None]
